FAERS Safety Report 10186239 (Version 2)
Quarter: 2014Q2

REPORT INFORMATION
  Report Type: Report from Study
  Country: JP (occurrence: JP)
  Receive Date: 20140521
  Receipt Date: 20140624
  Transmission Date: 20141212
  Serious: Yes (Death)
  Sender: FDA-Public Use
  Company Number: JP-GLAXOSMITHKLINE-B0994522A

PATIENT
  Age: 76 Year
  Sex: Male
  Weight: 57 kg

DRUGS (15)
  1. SAMTIREL [Suspect]
     Indication: PNEUMOCYSTIS JIROVECII PNEUMONIA
     Dosage: 750MG TWICE PER DAY
     Route: 048
     Dates: start: 20130109, end: 20130129
  2. PREDONINE [Concomitant]
     Dosage: 10MG PER DAY
     Route: 048
     Dates: end: 20121116
  3. PREDONINE [Concomitant]
     Dosage: 60MG PER DAY
     Route: 048
     Dates: start: 20121120, end: 20121203
  4. PREDONINE [Concomitant]
     Dosage: 50MG PER DAY
     Route: 048
     Dates: start: 20121204, end: 20121217
  5. PREDONINE [Concomitant]
     Dosage: 40MG PER DAY
     Route: 048
     Dates: start: 20121218, end: 20121227
  6. PREDONINE [Concomitant]
     Dosage: 60MG PER DAY
     Dates: start: 20121230
  7. CARBOCYSTEINE [Concomitant]
     Dosage: 500MG THREE TIMES PER DAY
     Route: 048
     Dates: start: 20120316
  8. HYPEN [Concomitant]
     Dosage: 200MG TWICE PER DAY
     Route: 048
     Dates: start: 20120316
  9. ONEALFA [Concomitant]
     Indication: PROPHYLAXIS
     Dosage: .5MCG PER DAY
     Route: 048
     Dates: start: 20120316
  10. TAKEPRON [Concomitant]
     Indication: PROPHYLAXIS
     Dosage: 15MG PER DAY
     Route: 048
     Dates: start: 20120316
  11. TULOBUTEROL [Concomitant]
     Dosage: 2MG PER DAY
     Route: 062
     Dates: start: 20120316
  12. MAGMITT [Concomitant]
     Dosage: 330MG THREE TIMES PER DAY
     Route: 048
     Dates: start: 20120316
  13. JANUVIA [Concomitant]
     Dosage: 50MG PER DAY
     Route: 048
     Dates: start: 20130109
  14. HUMULIN R [Concomitant]
     Dosage: 10IU THREE TIMES PER DAY
     Dates: start: 20120316
  15. LANTUS [Concomitant]
     Dosage: 8IU PER DAY
     Route: 058
     Dates: start: 20120316

REACTIONS (2)
  - Pneumonia bacterial [Fatal]
  - Interstitial lung disease [Fatal]
